FAERS Safety Report 15561329 (Version 1)
Quarter: 2018Q4

REPORT INFORMATION
  Report Type: Spontaneous
  Country: US (occurrence: US)
  Receive Date: 20181029
  Receipt Date: 20181029
  Transmission Date: 20190205
  Serious: No
  Sender: FDA-Public Use
  Company Number: US-CELGENEUS-USA-20181008769

PATIENT
  Sex: Female

DRUGS (3)
  1. THALOMID [Suspect]
     Active Substance: THALIDOMIDE
     Indication: GRANULOMA ANNULARE
     Dosage: 100 MILLIGRAM
     Route: 048
     Dates: start: 201808
  2. THALOMID [Suspect]
     Active Substance: THALIDOMIDE
     Indication: MALAISE
     Dosage: 50 MILLIGRAM
     Route: 048
     Dates: start: 201806
  3. THALOMID [Suspect]
     Active Substance: THALIDOMIDE
     Indication: OFF LABEL USE

REACTIONS (1)
  - Adverse drug reaction [Unknown]

NARRATIVE: CASE EVENT DATE: 2018
